FAERS Safety Report 5407931-4 (Version None)
Quarter: 2007Q3

REPORT INFORMATION
  Report Type: 
  Country: None (occurrence: None)
  Receive Date: 20070803
  Receipt Date: 20070726
  Transmission Date: 20080115
  Serious: Yes (Other)
  Sender: FDA-Public Use
  Company Number: 2007SP015185

PATIENT
  Age: 54 Year
  Sex: Female

DRUGS (7)
  1. PEG-INTRON [Suspect]
     Indication: HEPATITIS C
     Dates: start: 20061208
  2. RIBAVIRIN [Suspect]
     Indication: HEPATITIS C
     Dosage: PO
     Route: 048
     Dates: start: 20061208
  3. NAPROXEN [Concomitant]
  4. METOPROLOL SUCCINATE [Concomitant]
  5. TRAZODONE HCL [Concomitant]
  6. ALBUTEROL [Concomitant]
  7. PAIN MEDICATION [Concomitant]

REACTIONS (13)
  - ALOPECIA [None]
  - ARTHRITIS [None]
  - BLOOD PRESSURE INCREASED [None]
  - BREATH ODOUR [None]
  - CANDIDIASIS [None]
  - DEPRESSED MOOD [None]
  - DYSPHAGIA [None]
  - GLOSSODYNIA [None]
  - INSOMNIA [None]
  - PLEURISY [None]
  - RASH GENERALISED [None]
  - RASH MORBILLIFORM [None]
  - SWOLLEN TONGUE [None]
